FAERS Safety Report 7897299-6 (Version None)
Quarter: 2011Q4

REPORT INFORMATION
  Report Type: 
  Country: None (occurrence: None)
  Receive Date: 20111107
  Receipt Date: 20111102
  Transmission Date: 20120403
  Serious: Yes (Hospitalization, Other)
  Sender: FDA-Public Use
  Company Number: PHHY2010CA83386

PATIENT
  Sex: Female

DRUGS (3)
  1. ZOLEDRONOC ACID [Suspect]
     Indication: OSTEOPOROSIS
     Dosage: UNK UKN, UNK
     Route: 042
     Dates: start: 20081217
  2. ZOLEDRONOC ACID [Suspect]
     Dosage: UNK UKN, UNK
     Dates: start: 20101220
  3. ZOLEDRONOC ACID [Suspect]
     Dosage: UNK UKN, UNK
     Route: 042
     Dates: start: 20091221

REACTIONS (3)
  - CEREBROVASCULAR ACCIDENT [None]
  - GAIT DISTURBANCE [None]
  - SPINAL FRACTURE [None]
